FAERS Safety Report 4500978-1 (Version None)
Quarter: 2004Q4

REPORT INFORMATION
  Report Type: 
  Country: None (occurrence: None)
  Receive Date: 20041115
  Receipt Date: 20041018
  Transmission Date: 20050328
  Serious: Yes (Life-Threatening, Disabling)
  Sender: FDA-Public Use
  Company Number: US-MERCK-0410USA02741

PATIENT
  Age: 66 Year
  Sex: Male

DRUGS (8)
  1. VIOXX [Suspect]
     Indication: PAIN
     Route: 048
     Dates: start: 20000101, end: 20040901
  2. VIOXX [Suspect]
     Route: 048
  3. VIOXX [Suspect]
     Indication: INJURY
     Route: 048
     Dates: start: 20000101, end: 20040901
  4. VIOXX [Suspect]
     Route: 048
  5. COUMADIN [Concomitant]
     Route: 065
  6. NEURONTIN [Concomitant]
     Indication: PAIN
     Route: 065
  7. ZOCOR [Concomitant]
     Route: 048
  8. FISH OIL (UNSPECIFIED) [Concomitant]
     Route: 065

REACTIONS (3)
  - CARDIOMYOPATHY [None]
  - MYOCARDIAL INFARCTION [None]
  - VENTRICULAR EXTRASYSTOLES [None]
